FAERS Safety Report 9631393 (Version 1)
Quarter: 2013Q4

REPORT INFORMATION
  Report Type: Not Available
  Country: IT (occurrence: IT)
  Receive Date: 20131018
  Receipt Date: 20131018
  Transmission Date: 20140711
  Serious: Yes (Hospitalization)
  Sender: FDA-Public Use
  Company Number: IT-NAPPMUNDI-GBR-2013-0016032

PATIENT
  Age: 54 Year
  Sex: Male

DRUGS (3)
  1. OXYCONTIN [Suspect]
     Indication: LUMBAR SPINAL STENOSIS
     Dosage: 20 MG, DAILY
     Route: 048
     Dates: start: 20130911, end: 20130926
  2. LYRICA [Concomitant]
     Dosage: 25 MG, UNK
     Route: 048
  3. COUMADIN                           /00014802/ [Concomitant]

REACTIONS (2)
  - Tonic clonic movements [Recovered/Resolved]
  - Tetany [Recovered/Resolved]
